FAERS Safety Report 7803916-9 (Version None)
Quarter: 2011Q4

REPORT INFORMATION
  Report Type: 
  Country: None (occurrence: None)
  Receive Date: 20111010
  Receipt Date: 20111005
  Transmission Date: 20120403
  Serious: Yes (Other)
  Sender: FDA-Public Use
  Company Number: US-PFIZER INC-2011238161

PATIENT
  Sex: Male
  Weight: 100.68 kg

DRUGS (3)
  1. TAMSULOSIN [Concomitant]
     Dosage: UNK
  2. LIPITOR [Suspect]
     Indication: BLOOD CHOLESTEROL INCREASED
     Dosage: 80 MG, 1X/DAY
     Route: 048
     Dates: start: 20030101, end: 20111004
  3. LASIX [Concomitant]
     Dosage: UNK

REACTIONS (6)
  - MUSCLE DISORDER [None]
  - SLEEP DISORDER [None]
  - LIMB DISCOMFORT [None]
  - DYSSTASIA [None]
  - SCREAMING [None]
  - GAIT DISTURBANCE [None]
